FAERS Safety Report 8943319 (Version 1)
Quarter: 2012Q4

REPORT INFORMATION
  Report Type: 
  Country: FR (occurrence: FR)
  Receive Date: 20121203
  Receipt Date: 20121203
  Transmission Date: 20130627
  Serious: Yes (Life-Threatening, Hospitalization)
  Sender: FDA-Public Use
  Company Number: FR-PFIZER INC-2012298279

PATIENT
  Age: 1 Hour
  Sex: Female
  Weight: 4 kg

DRUGS (3)
  1. XANAX [Suspect]
     Indication: SCHIZOPHRENIA
     Dosage: UNK
     Route: 064
  2. TERCIAN [Suspect]
     Indication: SCHIZOPHRENIA
     Dosage: UNK
     Route: 064
  3. HALDOL [Suspect]
     Indication: SCHIZOPHRENIA
     Dosage: UNK
     Route: 064

REACTIONS (3)
  - Maternal exposure timing unspecified [Recovered/Resolved]
  - Hypotonia neonatal [Recovered/Resolved]
  - Cardio-respiratory arrest neonatal [Recovered/Resolved]
